FAERS Safety Report 20481735 (Version 1)
Quarter: 2022Q1

REPORT INFORMATION
  Report Type: Spontaneous
  Country: CN (occurrence: None)
  Receive Date: 20220216
  Receipt Date: 20220216
  Transmission Date: 20220423
  Serious: Yes (Hospitalization)
  Sender: FDA-Public Use
  Company Number: CN-Eisai Medical Research-EC-2022-108607

PATIENT
  Age: 66 Year
  Sex: Male

DRUGS (2)
  1. LENVIMA [Suspect]
     Active Substance: LENVATINIB
     Indication: Hepatic cancer
     Route: 048
     Dates: start: 20220128, end: 20220202
  2. SINTILIMAB [Concomitant]
     Active Substance: SINTILIMAB
     Indication: Hepatic cancer
     Route: 042
     Dates: start: 20220128, end: 20220128

REACTIONS (2)
  - Oliguria [Recovering/Resolving]
  - Creatinine urine increased [Recovering/Resolving]

NARRATIVE: CASE EVENT DATE: 20220202
